FAERS Safety Report 9315500 (Version 1)
Quarter: 2013Q2

REPORT INFORMATION
  Report Type: Report from Study
  Country: US (occurrence: US)
  Receive Date: 20130529
  Receipt Date: 20130529
  Transmission Date: 20140414
  Serious: Yes (Hospitalization)
  Sender: FDA-Public Use
  Company Number: US-ACTELION-A-US2013-82173

PATIENT
  Age: 56 Year
  Sex: Female

DRUGS (4)
  1. VELETRI [Suspect]
     Indication: PULMONARY ARTERIAL HYPERTENSION
     Dosage: 8 NG/KG, PER MIN
     Route: 042
     Dates: start: 20121206
  2. LETAIRIS [Concomitant]
  3. SILDENAFIL [Concomitant]
  4. COUMADIN [Concomitant]

REACTIONS (4)
  - Blood potassium decreased [Recovering/Resolving]
  - Device related infection [Recovering/Resolving]
  - Fluid retention [Recovering/Resolving]
  - Catheter placement [Recovering/Resolving]
